FAERS Safety Report 20685107 (Version 1)
Quarter: 2022Q2

REPORT INFORMATION
  Report Type: Spontaneous
  Country: US (occurrence: None)
  Receive Date: 20220407
  Receipt Date: 20220407
  Transmission Date: 20220721
  Serious: Yes (Death)
  Sender: FDA-Public Use
  Company Number: 2022A138629

PATIENT
  Age: 23675 Day
  Sex: Male
  Weight: 84.9 kg

DRUGS (2)
  1. ANDEXXA [Suspect]
     Active Substance: ANDEXANET ALFA
     Indication: Haemorrhage
     Dosage: 400.0MG ONCE/SINGLE ADMINISTRATION
     Route: 040
     Dates: start: 20220325, end: 20220325
  2. ANDEXXA [Suspect]
     Active Substance: ANDEXANET ALFA
     Indication: Haemorrhage
     Dosage: 480.0MG ONCE/SINGLE ADMINISTRATION
     Route: 040
     Dates: start: 20220325, end: 20220326

REACTIONS (3)
  - Aortic thrombosis [Fatal]
  - Peripheral artery occlusion [Fatal]
  - Peripheral ischaemia [Fatal]

NARRATIVE: CASE EVENT DATE: 20220326
